FAERS Safety Report 9168540 (Version 1)
Quarter: 2013Q1

REPORT INFORMATION
  Report Type: Spontaneous
  Country: GB (occurrence: GB)
  Receive Date: 20130318
  Receipt Date: 20130318
  Transmission Date: 20140127
  Serious: Yes (Hospitalization, Other)
  Sender: FDA-Public Use
  Company Number: GB-WATSON-2013-03758

PATIENT
  Age: 54 Year
  Sex: Female

DRUGS (2)
  1. QUININE SULFATE [Suspect]
     Indication: MUSCLE SPASMS
     Dosage: TAKEN AS REQUIRED
     Route: 048
  2. NABUMETONE [Concomitant]
     Indication: PRODUCT USED FOR UNKNOWN INDICATION
     Dosage: UNKNOWN
     Route: 065

REACTIONS (3)
  - Acute pulmonary oedema [Recovered/Resolved]
  - Respiratory acidosis [None]
  - Sinus tachycardia [None]
